FAERS Safety Report 18073625 (Version 6)
Quarter: 2021Q3

REPORT INFORMATION
  Report Type: Report from Study
  Country: US (occurrence: US)
  Receive Date: 20200727
  Receipt Date: 20210903
  Transmission Date: 20211014
  Serious: Yes (Other)
  Sender: FDA-Public Use
  Company Number: US-SHIRE-US202023369

PATIENT
  Age: 4 Year
  Sex: Male

DRUGS (3)
  1. ADVATE [Suspect]
     Active Substance: ANTIHEMOPHILIC FACTOR, HUMAN RECOMBINANT
     Indication: PRODUCT USED FOR UNKNOWN INDICATION
     Dosage: 2350 INTERNATIONAL UNIT
     Route: 042
  2. ADVATE [Suspect]
     Active Substance: ANTIHEMOPHILIC FACTOR, HUMAN RECOMBINANT
     Indication: PRODUCT USED FOR UNKNOWN INDICATION
     Dosage: 2350 INTERNATIONAL UNIT
     Route: 042
  3. ADVATE [Suspect]
     Active Substance: ANTIHEMOPHILIC FACTOR, HUMAN RECOMBINANT
     Indication: PRODUCT USED FOR UNKNOWN INDICATION
     Dosage: 2350 INTERNATIONAL UNIT
     Route: 042

REACTIONS (9)
  - Catheter site haemorrhage [Recovered/Resolved]
  - Poor venous access [Unknown]
  - Central venous catheter removal [Recovered/Resolved]
  - Contusion [Unknown]
  - Haemarthrosis [Recovered/Resolved]
  - Joint injury [Unknown]
  - Extra dose administered [Recovered/Resolved]
  - Fall [Unknown]
  - Head injury [Unknown]

NARRATIVE: CASE EVENT DATE: 20200703
